FAERS Safety Report 25748595 (Version 1)
Quarter: 2025Q3

REPORT INFORMATION
  Report Type: Spontaneous
  Country: GB (occurrence: GB)
  Receive Date: 20250902
  Receipt Date: 20250902
  Transmission Date: 20251021
  Serious: Yes (Disabling, Other)
  Sender: TEVA
  Company Number: GB-MHRA-TPP10661367C10091879YC1756293205793

PATIENT
  Age: 50 Year
  Sex: Female
  Weight: 62 kg

DRUGS (11)
  1. ATORVASTATIN [Suspect]
     Active Substance: ATORVASTATIN
     Indication: Ill-defined disorder
     Dosage: DAILY DOSAGE: 40MG
     Route: 065
     Dates: start: 20241016
  2. RAMIPRIL [Concomitant]
     Active Substance: RAMIPRIL
     Indication: Ill-defined disorder
     Dosage: DAILY DOSAGE: 1 DOSAGE FORM
     Dates: start: 20240718
  3. EZETIMIBE [Concomitant]
     Active Substance: EZETIMIBE
     Indication: Ill-defined disorder
     Dosage: DAILY DOSAGE: 1 DOSAGE FORM
     Dates: start: 20250612
  4. RIVAROXABAN [Concomitant]
     Active Substance: RIVAROXABAN
     Indication: Ill-defined disorder
     Dosage: DAILY DOSAGE: 2 DOSAGE FORM
     Dates: start: 20250707, end: 20250804
  5. LANSOPRAZOLE [Concomitant]
     Active Substance: LANSOPRAZOLE
     Indication: Ill-defined disorder
     Dosage: EACH MORNING
     Dates: start: 20240718
  6. FEXOFENADINE [Concomitant]
     Active Substance: FEXOFENADINE HYDROCHLORIDE
     Indication: Ill-defined disorder
     Dosage: DAILY DOSAGE: 1 DOSAGE FORM
     Dates: start: 20240718
  7. AMLODIPINE [Concomitant]
     Active Substance: AMLODIPINE BESYLATE
     Indication: Ill-defined disorder
     Dosage: DAILY DOSAGE: 1 DOSAGE FORM ; EACH MORNING
     Dates: start: 20240718
  8. ELLESTE-DUET [Concomitant]
     Indication: Ill-defined disorder
     Dosage: DAILY DOSAGE: 1 DOSAGE FORM
     Dates: start: 20240718
  9. FLUTICASONE FUROATE [Concomitant]
     Active Substance: FLUTICASONE FUROATE
     Indication: Ill-defined disorder
     Dosage: DAILY DOSAGE: 1 DOSAGE FORM
     Dates: start: 20240718
  10. ASPIRIN [Concomitant]
     Active Substance: ASPIRIN
     Indication: Ill-defined disorder
     Dosage: DAILY DOSAGE: 1 DOSAGE FORM; WITH FOOD
     Dates: start: 20240718
  11. NIZATIDINE [Concomitant]
     Active Substance: NIZATIDINE
     Indication: Ill-defined disorder
     Dosage: DAILY DOSAGE: 1 DOSAGE FORM EACH NIGHT
     Dates: start: 20240718

REACTIONS (2)
  - Vomiting [Recovered/Resolved]
  - Nausea [Recovered/Resolved]

NARRATIVE: CASE EVENT DATE: 20250612
